FAERS Safety Report 7067531-X (Version None)
Quarter: 2010Q4

REPORT INFORMATION
  Report Type: 
  Country: None (occurrence: None)
  Receive Date: 20101020
  Receipt Date: 20101011
  Transmission Date: 20110411
  Serious: Yes (Death)
  Sender: FDA-Public Use
  Company Number: 2523595-2010-00014

PATIENT
  Sex: Female

DRUGS (1)
  1. UVADEX [Suspect]
     Indication: TRANSPLANT REJECTION
     Dosage: PER ECP TREATMENT
     Dates: start: 20100915

REACTIONS (2)
  - INTENTIONAL OVERDOSE [None]
  - TRANSPLANT REJECTION [None]
